FAERS Safety Report 6416338-2 (Version None)
Quarter: 2009Q4

REPORT INFORMATION
  Report Type: 
  Country: None (occurrence: None)
  Receive Date: 20091027
  Receipt Date: 20091021
  Transmission Date: 20100525
  Serious: Yes (Death, Life-Threatening, Hospitalization, Other)
  Sender: FDA-Public Use
  Company Number: US-ELI_LILLY_AND_COMPANY-US200910005236

PATIENT
  Sex: Male

DRUGS (23)
  1. BYETTA [Suspect]
     Indication: TYPE 2 DIABETES MELLITUS
     Dosage: 10 UG, 2/D
     Route: 058
     Dates: start: 20050101, end: 20080501
  2. NOVOLOG [Concomitant]
     Indication: TYPE 2 DIABETES MELLITUS
  3. LANTUS [Concomitant]
     Indication: TYPE 2 DIABETES MELLITUS
  4. COQ10 [Concomitant]
     Indication: SUPPLEMENTATION THERAPY
  5. KLOR-CON [Concomitant]
     Dosage: 20 MEQ, DAILY (1/D)
     Route: 048
  6. COREG CR [Concomitant]
     Dosage: 80 MG, DAILY (1/D)
     Route: 048
  7. SIMVASTATIN [Concomitant]
     Dosage: 80 MG, EACH EVENING
     Route: 048
  8. COUMADIN [Concomitant]
     Dosage: UNK, OTHER
     Route: 048
  9. LEVOCARB [Concomitant]
     Dosage: UNK, 2/D
     Route: 048
  10. FOLIC ACID [Concomitant]
     Dosage: 1 MG, DAILY (1/D)
     Route: 048
  11. ALTACE [Concomitant]
     Dosage: 2.5 MG, DAILY (1/D)
     Route: 048
  12. FERROUS SULFATE TAB [Concomitant]
     Dosage: UNK, 2/D
     Route: 048
  13. ZETIA [Concomitant]
     Dosage: 10 MG, DAILY (1/D)
     Route: 048
  14. CYMBALTA [Concomitant]
     Dosage: 60 MG, DAILY (1/D)
     Route: 048
  15. HYDROCODONE [Concomitant]
     Indication: PAIN
     Dosage: UNK, AS NEEDED
  16. NEURONTIN [Concomitant]
     Indication: NEUROPATHY PERIPHERAL
     Dosage: 800 MG, OTHER
     Route: 048
  17. ZOLOFT [Concomitant]
     Dosage: UNK, DAILY (1/D)
     Route: 048
  18. LEXAPRO [Concomitant]
     Dosage: UNK, DAILY (1/D)
     Route: 048
  19. ASPIRIN [Concomitant]
     Dosage: UNK, DAILY (1/D)
     Route: 048
  20. PHENERGAN HCL [Concomitant]
     Indication: NAUSEA
     Dosage: UNK, AS NEEDED
  21. MORPHINE [Concomitant]
     Dosage: 30 MG, EVERY 6 HRS
     Route: 048
  22. OTHER NERVOUS SYSTEM DRUGS [Concomitant]
     Indication: ANXIETY
     Dosage: UNK, UNKNOWN
  23. PLASMA [Concomitant]

REACTIONS (19)
  - BACK PAIN [None]
  - CARDIAC ARREST [None]
  - COLD SWEAT [None]
  - COLLAPSE OF LUNG [None]
  - EXTRAVASATION BLOOD [None]
  - FATIGUE [None]
  - FEELING COLD [None]
  - HAEMORRHAGE [None]
  - HEADACHE [None]
  - INJURY [None]
  - MOBILITY DECREASED [None]
  - MYOCARDIAL INFARCTION [None]
  - NEUROPATHY PERIPHERAL [None]
  - OFF LABEL USE [None]
  - PAIN [None]
  - PAIN IN EXTREMITY [None]
  - PNEUMONIA [None]
  - TRANSFUSION [None]
  - UNRESPONSIVE TO STIMULI [None]
